FAERS Safety Report 8404161-9 (Version None)
Quarter: 2012Q2

REPORT INFORMATION
  Report Type: 
  Country: None (occurrence: None)
  Receive Date: 20120601
  Receipt Date: 20120517
  Transmission Date: 20120825
  Serious: Yes (Other)
  Sender: FDA-Public Use
  Company Number: CHPA2012US011205

PATIENT
  Age: 59 Year
  Sex: Male

DRUGS (3)
  1. HABITROL [Suspect]
     Dosage: 21 MG, QD
     Route: 062
     Dates: start: 20000101
  2. DRUG THERAPY NOS [Concomitant]
     Indication: CHRONIC OBSTRUCTIVE PULMONARY DISEASE
  3. HABITROL [Suspect]
     Indication: SMOKING CESSATION THERAPY
     Dosage: 14 MG, QD
     Route: 062
     Dates: start: 20000101

REACTIONS (6)
  - RENAL IMPAIRMENT [None]
  - CHOLELITHIASIS [None]
  - TREATMENT NONCOMPLIANCE [None]
  - OSTEOARTHRITIS [None]
  - OVERDOSE [None]
  - INAPPROPRIATE SCHEDULE OF DRUG ADMINISTRATION [None]
